FAERS Safety Report 4599521-0 (Version None)
Quarter: 2005Q1

REPORT INFORMATION
  Report Type: 
  Country: None (occurrence: None)
  Receive Date: 20050303
  Receipt Date: 20050216
  Transmission Date: 20050727
  Serious: Yes (Hospitalization, Other)
  Sender: FDA-Public Use
  Company Number: USA050188966

PATIENT
  Age: 50 Year
  Sex: Male
  Weight: 159 kg

DRUGS (7)
  1. CYMBALTA [Suspect]
     Indication: DEPRESSION
     Dosage: 60 MG DAY
     Dates: start: 20041118, end: 20050111
  2. ZOLOFT [Concomitant]
  3. ABILIFT (ARIPRPRAZOLE) [Concomitant]
  4. RITALIN [Concomitant]
  5. DARVOCET-N 100 [Concomitant]
  6. SYNTHROID [Concomitant]
  7. BENADRYL [Concomitant]

REACTIONS (4)
  - CONDITION AGGRAVATED [None]
  - PRURITUS [None]
  - SOMNOLENCE [None]
  - SUICIDAL IDEATION [None]
